FAERS Safety Report 18283923 (Version 1)
Quarter: 2020Q3

REPORT INFORMATION
  Report Type: Report from Study
  Country: US (occurrence: US)
  Receive Date: 20200918
  Receipt Date: 20200918
  Transmission Date: 20201103
  Serious: Yes (Other)
  Sender: FDA-Public Use
  Company Number: US-JNJFOC-A-NJ2020-208642

PATIENT
  Age: 51 Year
  Sex: Female
  Weight: 131.66 kg

DRUGS (5)
  1. XARELTO [Concomitant]
     Active Substance: RIVAROXABAN
  2. ORENITRAM [Suspect]
     Active Substance: TREPROSTINIL
     Route: 065
  3. OPSUMIT [Suspect]
     Active Substance: MACITENTAN
     Indication: PULMONARY ARTERIAL HYPERTENSION
     Dosage: 10 MG, QD
     Route: 048
  4. TADALAFIL. [Concomitant]
     Active Substance: TADALAFIL
  5. ORENITRAM [Suspect]
     Active Substance: TREPROSTINIL
     Indication: PRODUCT USED FOR UNKNOWN INDICATION
     Dosage: 0.875 MORNING AND EVENING
     Route: 065

REACTIONS (5)
  - Ageusia [Recovered/Resolved]
  - Pain in jaw [Unknown]
  - Headache [Not Recovered/Not Resolved]
  - Nasal congestion [Recovered/Resolved]
  - Coronavirus test positive [Unknown]
